FAERS Safety Report 12079576 (Version 2)
Quarter: 2016Q1

REPORT INFORMATION
  Report Type: Spontaneous
  Country: US (occurrence: US)
  Receive Date: 20160216
  Receipt Date: 20160307
  Transmission Date: 20160526
  Serious: No
  Sender: FDA-Public Use
  Company Number: US-PFIZER INC-2016068004

PATIENT
  Age: 73 Year
  Sex: Male
  Weight: 88.44 kg

DRUGS (10)
  1. SIMVASTATIN. [Concomitant]
     Active Substance: SIMVASTATIN
     Dosage: UNK
  2. RITALIN [Concomitant]
     Active Substance: METHYLPHENIDATE HYDROCHLORIDE
  3. EFFIENT [Concomitant]
     Active Substance: PRASUGREL HYDROCHLORIDE
     Dosage: UNK
  4. COQ 10 [Concomitant]
     Active Substance: UBIDECARENONE
     Dosage: UNK
  5. SUTENT [Suspect]
     Active Substance: SUNITINIB MALATE
     Indication: GASTROINTESTINAL STROMAL TUMOUR
     Dosage: 37.5 MG, DAILY
     Dates: start: 20160117
  6. DEXILANT [Concomitant]
     Active Substance: DEXLANSOPRAZOLE
     Dosage: UNK
  7. COZAAR [Concomitant]
     Active Substance: LOSARTAN POTASSIUM
     Dosage: UNK
  8. METOPROLOL. [Concomitant]
     Active Substance: METOPROLOL
     Dosage: UNK
  9. VITAMIN B12 [Concomitant]
     Active Substance: CYANOCOBALAMIN
     Dosage: UNK
  10. VITAMIN D [Concomitant]
     Active Substance: CHOLECALCIFEROL
     Dosage: UNK

REACTIONS (12)
  - Foreign body sensation in eyes [Unknown]
  - Lacrimation increased [Unknown]
  - Skin discolouration [Unknown]
  - Abdominal pain [Recovered/Resolved]
  - Weight decreased [Unknown]
  - Dry eye [Unknown]
  - Dysphonia [Unknown]
  - Photophobia [Unknown]
  - Nail disorder [Unknown]
  - Onychoclasis [Unknown]
  - Fatigue [Unknown]
  - Blood pressure increased [Unknown]
